FAERS Safety Report 8100347-1 (Version None)
Quarter: 2012Q1

REPORT INFORMATION
  Report Type: 
  Country: None (occurrence: None)
  Receive Date: 20120129
  Receipt Date: 20111123
  Transmission Date: 20120608
  Serious: No
  Sender: FDA-Public Use
  Company Number: US-ABBOTT-11P-163-0877779-00

PATIENT
  Age: 56 Year
  Sex: Female

DRUGS (14)
  1. SYNTHROID [Concomitant]
     Indication: HYPOTHYROIDISM
  2. WELLBUTRIN [Concomitant]
     Indication: DEPRESSION
  3. VITAMIN D [Concomitant]
     Indication: PRODUCT USED FOR UNKNOWN INDICATION
  4. SIMCOR [Suspect]
     Indication: PRODUCT USED FOR UNKNOWN INDICATION
  5. PRILOSEC OTC [Concomitant]
     Indication: HIATUS HERNIA
  6. TRAZODONE HCL [Concomitant]
     Indication: ANXIETY
     Route: 048
  7. HUMIRA [Suspect]
     Indication: ANKYLOSING SPONDYLITIS
     Dates: start: 20110901, end: 20111123
  8. ZOLOFT [Concomitant]
     Indication: DEPRESSION
     Route: 048
  9. CALCIUM [Concomitant]
     Indication: SUPPLEMENTATION THERAPY
  10. PROPRANOLOL [Concomitant]
     Indication: HEART RATE INCREASED
  11. PRILOSEC OTC [Concomitant]
     Indication: GASTROOESOPHAGEAL REFLUX DISEASE
  12. VITAMIN B-12 [Concomitant]
     Indication: PRODUCT USED FOR UNKNOWN INDICATION
  13. CYTOMEL [Concomitant]
     Indication: THYROID THERAPY
  14. ATIVAN [Concomitant]
     Indication: ANXIETY
     Dosage: GOT

REACTIONS (7)
  - NAUSEA [None]
  - DECREASED APPETITE [None]
  - PAIN IN EXTREMITY [None]
  - WEIGHT DECREASED [None]
  - URINARY TRACT INFECTION [None]
  - CONSTIPATION [None]
  - FLUSHING [None]
